FAERS Safety Report 12486651 (Version 5)
Quarter: 2016Q3

REPORT INFORMATION
  Report Type: Spontaneous
  Country: US (occurrence: US)
  Receive Date: 20160621
  Receipt Date: 20160722
  Transmission Date: 20161109
  Serious: Yes (Hospitalization)
  Sender: FDA-Public Use
  Company Number: US-ACTELION-A-NJ2016-137600

PATIENT
  Age: 51 Year
  Sex: Female

DRUGS (4)
  1. VELETRI [Suspect]
     Active Substance: EPOPROSTENOL
     Indication: PULMONARY ARTERIAL HYPERTENSION
     Dosage: 6 NG/KG, PER MIN
     Route: 042
     Dates: start: 20160528
  2. DILTIAZEM. [Concomitant]
     Active Substance: DILTIAZEM
  3. VELETRI [Suspect]
     Active Substance: EPOPROSTENOL
     Dosage: 13.16 NG/KG, UNK
     Route: 042
     Dates: start: 20160528
  4. TYVASO [Suspect]
     Active Substance: TREPROSTINIL
     Indication: PULMONARY HYPERTENSION
     Dosage: 18-72 MCG, QID
     Route: 055
     Dates: start: 20160406

REACTIONS (18)
  - Accidental overdose [Unknown]
  - Flushing [Unknown]
  - Pneumonia [Unknown]
  - Ventilation perfusion mismatch [Unknown]
  - Loss of consciousness [Unknown]
  - Device use error [Unknown]
  - Pain in jaw [Unknown]
  - Oxygen consumption increased [Recovering/Resolving]
  - Pulmonary fibrosis [Unknown]
  - Lung disorder [Unknown]
  - Feeling hot [Unknown]
  - Erythema [Unknown]
  - Headache [Unknown]
  - Concomitant disease progression [Unknown]
  - Hypertension [Unknown]
  - Dyspnoea [Recovering/Resolving]
  - Acute respiratory failure [Recovering/Resolving]
  - Dizziness [Unknown]
